FAERS Safety Report 20885106 (Version 3)
Quarter: 2022Q3

REPORT INFORMATION
  Report Type: Report from Study
  Country: CN (occurrence: CN)
  Receive Date: 20220527
  Receipt Date: 20220707
  Transmission Date: 20221027
  Serious: Yes (Hospitalization)
  Sender: FDA-Public Use
  Company Number: CN-BRISTOL-MYERS SQUIBB COMPANY-2022-045285

PATIENT
  Age: 64 Year
  Sex: Male
  Weight: 62 kg

DRUGS (4)
  1. DOCETAXEL [Suspect]
     Active Substance: DOCETAXEL
     Indication: Prostate cancer
     Dosage: MOST RECENT DOSE OF 128 MG ON 11-MAR-2022?DOSE DELAYED
     Route: 042
     Dates: start: 20210903
  2. DOCETAXEL [Suspect]
     Active Substance: DOCETAXEL
     Dosage: MOST RECENT DOSE OF 128 MG ON 11-MAR-2022?DOSE DELAYED
     Route: 042
     Dates: start: 20220311
  3. PREDNISONE [Concomitant]
     Active Substance: PREDNISONE
     Indication: Prostate cancer
     Dosage: RECEIVED 10 MG FROM 16-FEB-2022 TILL 11-MAR-2022?MOST RECENT DOSE ON 11-MAR-2022?DOSE DELAYED
     Route: 042
     Dates: start: 20210903
  4. LOXOPROFEN SODIUM [Concomitant]
     Active Substance: LOXOPROFEN SODIUM
     Indication: Back pain
     Dosage: LOSOLPROFEN SODIUM GEL CREAM?1 DF- 2 UNITS NOS
     Route: 061
     Dates: start: 20220502, end: 20220517

REACTIONS (2)
  - Intervertebral disc protrusion [Recovering/Resolving]
  - Lumbar radiculopathy [Recovering/Resolving]

NARRATIVE: CASE EVENT DATE: 20220519
